FAERS Safety Report 19586305 (Version 5)
Quarter: 2021Q3

REPORT INFORMATION
  Report Type: Spontaneous
  Country: US (occurrence: US)
  Receive Date: 20210720
  Receipt Date: 20210924
  Transmission Date: 20211014
  Serious: Yes (Other)
  Sender: FDA-Public Use
  Company Number: US-BAYER-2021-179195

PATIENT
  Age: 16 Year
  Sex: Male

DRUGS (4)
  1. JIVI [Suspect]
     Active Substance: DAMOCTOCOG ALFA PEGOL
     Dosage: HURT HIS LEFT BIG TOE, USED 1/2 DOSE TO TREAT
     Dates: start: 20210712, end: 20210712
  2. JIVI [Suspect]
     Active Substance: DAMOCTOCOG ALFA PEGOL
     Dosage: 4272 U
  3. JIVI [Suspect]
     Active Substance: DAMOCTOCOG ALFA PEGOL
     Dosage: STRENGTH 3127/2191 UNITS; DOSE PRESCRIBED 3500/4072 UNITS
     Dates: start: 20210815
  4. JIVI [Suspect]
     Active Substance: DAMOCTOCOG ALFA PEGOL
     Dosage: DOSE PRESCRIBED 3500/4072 UNITS, 1 DOSE TO TREAT TOE BLEED
     Dates: start: 20210815

REACTIONS (2)
  - Limb injury [Recovering/Resolving]
  - Haemorrhage [Recovered/Resolved]

NARRATIVE: CASE EVENT DATE: 20210712
